FAERS Safety Report 7681637-3 (Version None)
Quarter: 2011Q3

REPORT INFORMATION
  Report Type: 
  Country: None (occurrence: None)
  Receive Date: 20110812
  Receipt Date: 20110808
  Transmission Date: 20111222
  Serious: Yes (Death, Hospitalization)
  Sender: FDA-Public Use
  Company Number: PHHY2011CA71744

PATIENT
  Sex: Female
  Weight: 92.5 kg

DRUGS (1)
  1. RIVASTIGMINE [Suspect]
     Dosage: 9.5 MG,(PATCH 10 CM)
     Route: 062
     Dates: end: 20110610

REACTIONS (1)
  - DEATH [None]
